FAERS Safety Report 14785496 (Version 1)
Quarter: 2018Q2

REPORT INFORMATION
  Report Type: Spontaneous
  Country: GB (occurrence: GB)
  Receive Date: 20180420
  Receipt Date: 20180420
  Transmission Date: 20180711
  Serious: Yes (Death)
  Sender: FDA-Public Use
  Company Number: GB-MYLANLABS-2018M1025592

PATIENT
  Age: 95 Year
  Sex: Female

DRUGS (2)
  1. ASPIRIN                            /00002701/ [Interacting]
     Active Substance: ASPIRIN
     Indication: PRODUCT USED FOR UNKNOWN INDICATION
     Dosage: UNK
  2. HEPARIN [Suspect]
     Active Substance: HEPARIN SODIUM
     Indication: PRODUCT USED FOR UNKNOWN INDICATION
     Dosage: UNK

REACTIONS (5)
  - Duodenal ulcer haemorrhage [Fatal]
  - Labelled drug-drug interaction medication error [Fatal]
  - Chronic kidney disease [Fatal]
  - Drug administration error [Fatal]
  - Drug interaction [Unknown]
